FAERS Safety Report 20217370 (Version 1)
Quarter: 2021Q4

REPORT INFORMATION
  Report Type: Spontaneous
  Country: US (occurrence: US)
  Receive Date: 20211222
  Receipt Date: 20211222
  Transmission Date: 20220303
  Serious: Yes (Other)
  Sender: FDA-Public Use
  Company Number: US-PFIZER INC-2020401652

PATIENT
  Age: 66 Year
  Sex: Male

DRUGS (1)
  1. VYNDAMAX [Suspect]
     Active Substance: TAFAMIDIS
     Indication: Cardiac amyloidosis
     Dosage: 61 MG
     Dates: end: 20201014

REACTIONS (6)
  - Oedema peripheral [Unknown]
  - Pigmentation disorder [Unknown]
  - Pain in extremity [Unknown]
  - Peripheral pulse decreased [Unknown]
  - Varicose vein [Unknown]
  - Dyspnoea exertional [Unknown]
